FAERS Safety Report 7988730 (Version 2)
Quarter: 2012Q4

REPORT INFORMATION
  Report Type: 
  Country: CA (occurrence: CA)
  Receive Date: 20110613
  Receipt Date: 20121107
  Transmission Date: 20130627
  Serious: Yes (Death, Hospitalization, Other)
  Sender: FDA-Public Use
  Company Number: PHMT2006CA02216

PATIENT
  Sex: Female

DRUGS (5)
  1. SANDOSTATIN LAR [Suspect]
     Indication: CARCINOID TUMOUR OF THE PANCREAS
     Dosage: 20 mg, UNK
     Dates: start: 20061101
  2. ACCUPRIL [Concomitant]
  3. ALDOMET [Concomitant]
  4. ASA [Concomitant]
  5. METOPROLOL [Concomitant]

REACTIONS (7)
  - Renal impairment [Fatal]
  - Blood creatinine increased [Fatal]
  - Disease progression [Fatal]
  - Infection [Recovered/Resolved]
  - Dehydration [Recovered/Resolved]
  - Dysgeusia [Unknown]
  - Diarrhoea [Recovered/Resolved]
